FAERS Safety Report 6171311-7 (Version None)
Quarter: 2009Q2

REPORT INFORMATION
  Report Type: 
  Country: None (occurrence: None)
  Receive Date: 20090429
  Receipt Date: 20090416
  Transmission Date: 20091009
  Serious: Yes (Hospitalization)
  Sender: FDA-Public Use
  Company Number: JP-ASTRAZENECA-2009AC01165

PATIENT
  Sex: Male

DRUGS (2)
  1. MEROPEN [Suspect]
     Dates: start: 20090406, end: 20090413
  2. TAKEPRON [Concomitant]

REACTIONS (1)
  - RENAL IMPAIRMENT [None]
